FAERS Safety Report 6085377-6 (Version None)
Quarter: 2009Q1

REPORT INFORMATION
  Report Type: 
  Country: None (occurrence: None)
  Receive Date: 20090217
  Receipt Date: 20090205
  Transmission Date: 20090719
  Serious: Yes (Other)
  Sender: FDA-Public Use
  Company Number: B0558826A

PATIENT
  Age: 64 Year
  Sex: Female

DRUGS (5)
  1. SULFAMETHOXAZOLE AND TRIMETHOPRIM [Suspect]
     Indication: DEVICE RELATED INFECTION
  2. CEFUROXIME SODIUM [Suspect]
     Indication: DEVICE RELATED INFECTION
  3. AMPICILLIN TRIHYDRATE [Suspect]
  4. LEVOFLOXACIN [Suspect]
     Indication: DEVICE RELATED INFECTION
  5. CLINDAMYCIN HCL [Suspect]
     Indication: DEVICE RELATED INFECTION

REACTIONS (8)
  - ARTHRITIS [None]
  - CULTURE WOUND POSITIVE [None]
  - DEVICE BREAKAGE [None]
  - DRUG HYPERSENSITIVITY [None]
  - IMPAIRED HEALING [None]
  - INFECTION IN AN IMMUNOCOMPROMISED HOST [None]
  - LISTERIOSIS [None]
  - TREATMENT FAILURE [None]
